FAERS Safety Report 8138343-0 (Version None)
Quarter: 2012Q1

REPORT INFORMATION
  Report Type: 
  Country: None (occurrence: None)
  Receive Date: 20120215
  Receipt Date: 20120210
  Transmission Date: 20120608
  Serious: No
  Sender: FDA-Public Use
  Company Number: US-PFIZER INC-2012037107

PATIENT
  Age: 75 Year
  Sex: Female
  Weight: 62.132 kg

DRUGS (8)
  1. AMITRIPTYLINE [Concomitant]
     Indication: DEPRESSION
     Dosage: 20 MG, DAILY
  2. GABAPENTIN [Suspect]
     Indication: NEURALGIA
  3. VASOTEC [Concomitant]
     Indication: HYPERTENSION
     Dosage: 20 MG, DAILY
  4. GABAPENTIN [Suspect]
     Indication: MYALGIA
  5. SPIRIVA [Concomitant]
     Indication: CHRONIC OBSTRUCTIVE PULMONARY DISEASE
     Dosage: UNK
  6. GABAPENTIN [Suspect]
     Indication: FIBROMYALGIA
     Dosage: 600 MG, DAILY
  7. TRAZODONE [Concomitant]
     Indication: DEPRESSION
     Dosage: 50 MG IN THE MORNING AND 150 MG AT NIGHT
  8. ATENOLOL [Concomitant]
     Indication: HYPERTENSION
     Dosage: 25 MG, DAILY

REACTIONS (1)
  - CHEST PAIN [None]
